FAERS Safety Report 5194526-3 (Version None)
Quarter: 2006Q4

REPORT INFORMATION
  Report Type: 
  Country: None (occurrence: None)
  Receive Date: 20061222
  Receipt Date: 20061220
  Transmission Date: 20070319
  Serious: Yes (Life-Threatening)
  Sender: FDA-Public Use
  Company Number: 2006S1000256

PATIENT
  Age: 7 Day
  Sex: Female

DRUGS (9)
  1. NITRIC OXIDE [Suspect]
     Indication: LUNG DISORDER
     Dosage: 5 PPM; INH_GAS; INH; CONT INH
     Route: 055
     Dates: start: 20061206
  2. LUKADIN [Concomitant]
  3. UNASYN (SULTAMICILLIN TOSILATE) [Concomitant]
  4. REMIFENTANIL (REMIFENTANIL) [Concomitant]
  5. INSULIN [Concomitant]
  6. IBUPROFEN [Concomitant]
  7. CLARITHROMYCIN [Concomitant]
  8. ANCOTIL (FLUCYTOSINE) [Concomitant]
  9. AMBIXOME (AMPHOTERICINE B, LIPOSOME) [Concomitant]

REACTIONS (3)
  - PATENT DUCTUS ARTERIOSUS [None]
  - PNEUMOTHORAX [None]
  - PROCEDURAL COMPLICATION [None]
